FAERS Safety Report 8802215 (Version 2)
Quarter: 2015Q2

REPORT INFORMATION
  Report Type: Report from Study
  Country: US (occurrence: US)
  Receive Date: 20120921
  Receipt Date: 20150624
  Transmission Date: 20150821
  Serious: Yes (Death, Hospitalization, Other)
  Sender: FDA-Public Use
  Company Number: US-ROCHE-1122883

PATIENT
  Age: 33 Year
  Sex: Male

DRUGS (1)
  1. AVASTIN [Suspect]
     Active Substance: BEVACIZUMAB
     Indication: NEOPLASM MALIGNANT
     Route: 065

REACTIONS (12)
  - Hyperhidrosis [Unknown]
  - Back pain [Unknown]
  - Sepsis [Unknown]
  - Nausea [Recovering/Resolving]
  - Malaise [Unknown]
  - Cachexia [Unknown]
  - Vomiting [Recovering/Resolving]
  - Decreased appetite [Unknown]
  - Oedema peripheral [Unknown]
  - Death [Fatal]
  - Tendon disorder [Unknown]
  - Musculoskeletal pain [Unknown]

NARRATIVE: CASE EVENT DATE: 20080813
